FAERS Safety Report 7678538-3 (Version None)
Quarter: 2011Q3

REPORT INFORMATION
  Report Type: 
  Country: None (occurrence: None)
  Receive Date: 20110811
  Receipt Date: 20110809
  Transmission Date: 20111222
  Serious: Yes (Other)
  Sender: FDA-Public Use
  Company Number: US-BAYER-2011-064748

PATIENT
  Sex: Female

DRUGS (1)
  1. MIRENA [Suspect]
     Indication: CONTRACEPTION

REACTIONS (3)
  - COMPLICATION OF DEVICE REMOVAL [None]
  - PREGNANCY WITH CONTRACEPTIVE DEVICE [None]
  - BLIGHTED OVUM [None]
